FAERS Safety Report 20181164 (Version 2)
Quarter: 2022Q2

REPORT INFORMATION
  Report Type: Spontaneous
  Country: US (occurrence: US)
  Receive Date: 20211214
  Receipt Date: 20220404
  Transmission Date: 20220720
  Serious: Yes (Death, Hospitalization, Other)
  Sender: FDA-Public Use
  Company Number: US-PFIZER INC-2021656965

PATIENT
  Age: 62 Year
  Sex: Female

DRUGS (2)
  1. XELJANZ [Suspect]
     Active Substance: TOFACITINIB CITRATE
     Indication: Rheumatoid arthritis
     Dosage: 5 MG, 2X/DAY
     Route: 048
     Dates: start: 20210531, end: 202201
  2. XELJANZ [Suspect]
     Active Substance: TOFACITINIB CITRATE
     Indication: Colitis ulcerative

REACTIONS (11)
  - COVID-19 pneumonia [Fatal]
  - Seizure [Unknown]
  - Intentional product misuse [Unknown]
  - Depression [Recovering/Resolving]
  - Discouragement [Unknown]
  - Erythema of eyelid [Unknown]
  - Skin lesion [Unknown]
  - Skin reaction [Unknown]
  - Swelling of eyelid [Recovered/Resolved]
  - Fungal foot infection [Unknown]
  - Swollen tongue [Recovered/Resolved]

NARRATIVE: CASE EVENT DATE: 20220101
